FAERS Safety Report 22049588 (Version 2)
Quarter: 2023Q2

REPORT INFORMATION
  Report Type: Spontaneous
  Country: FR (occurrence: FR)
  Receive Date: 20230301
  Receipt Date: 20230405
  Transmission Date: 20230722
  Serious: Yes (Other)
  Sender: FDA-Public Use
  Company Number: FR-002147023-NVSC2023FR045970

PATIENT
  Age: 61 Year
  Sex: Female
  Weight: 59 kg

DRUGS (14)
  1. AFINITOR [Suspect]
     Active Substance: EVEROLIMUS
     Indication: Neoplasm
     Dosage: 2.5 MG, QD (DOSE LEVEL: -2 AND-1)
     Route: 065
  2. AFINITOR [Suspect]
     Active Substance: EVEROLIMUS
     Dosage: 5 MG, QD (DOSE LEVEL: 1,2)
     Route: 065
  3. AFINITOR [Suspect]
     Active Substance: EVEROLIMUS
     Dosage: 7.5 MG, QD (DOSE LEVEL: 3)
     Route: 065
  4. AFINITOR [Suspect]
     Active Substance: EVEROLIMUS
     Dosage: 10 MG, QD (DOSE LEVEL: 4)
     Route: 065
     Dates: start: 20180306, end: 20180319
  5. NEXAVAR [Suspect]
     Active Substance: SORAFENIB
     Indication: Neoplasm
     Dosage: 200 MG, QD (DOSE LEVEL: -2)
     Route: 065
  6. NEXAVAR [Suspect]
     Active Substance: SORAFENIB
     Dosage: 200 MG, BID (DOSE LEVEL: -1 AND 1)
     Route: 065
  7. NEXAVAR [Suspect]
     Active Substance: SORAFENIB
     Dosage: 400 MG, BID (DOSE LEVEL: 2,3,4)
     Route: 065
  8. NEXAVAR [Suspect]
     Active Substance: SORAFENIB
     Dosage: 400 MG, BID (DOSE LEVEL: 4)3 DAYS-ON AND 4-DAYS OFF
     Route: 065
     Dates: start: 20180306, end: 20180315
  9. ATENOLOL [Concomitant]
     Active Substance: ATENOLOL
     Indication: Product used for unknown indication
     Dosage: 100 MG, QD
     Route: 065
  10. VENLAFAXINE [Concomitant]
     Active Substance: VENLAFAXINE HYDROCHLORIDE
     Indication: Product used for unknown indication
     Dosage: 75 MG, BID
     Route: 065
  11. CANDESARTAN [Concomitant]
     Active Substance: CANDESARTAN
     Indication: Product used for unknown indication
     Dosage: 8 MG, QD
     Route: 065
  12. LEVOTHYROXINE [Concomitant]
     Active Substance: LEVOTHYROXINE
     Indication: Product used for unknown indication
     Dosage: 125 UG, QD
     Route: 065
  13. RIVAROXABAN [Concomitant]
     Active Substance: RIVAROXABAN
     Indication: Product used for unknown indication
     Dosage: 20 MG, QD
     Route: 065
     Dates: end: 20180303
  14. VERAPAMIL [Concomitant]
     Active Substance: VERAPAMIL HYDROCHLORIDE
     Indication: Product used for unknown indication
     Dosage: 120 MG, BID
     Route: 065
     Dates: end: 20180302

REACTIONS (2)
  - Cholestasis [Recovered/Resolved]
  - Sepsis [Recovered/Resolved]

NARRATIVE: CASE EVENT DATE: 20180309
